FAERS Safety Report 16131708 (Version 1)
Quarter: 2019Q1

REPORT INFORMATION
  Report Type: Spontaneous
  Country: FR (occurrence: FR)
  Receive Date: 20190329
  Receipt Date: 20190329
  Transmission Date: 20190418
  Serious: Yes (Other)
  Sender: FDA-Public Use
  Company Number: FR-AUROBINDO-AUR-APL-2019-016248

PATIENT

DRUGS (3)
  1. BISOPROLOL [Suspect]
     Active Substance: BISOPROLOL
     Indication: HYPERTENSION
     Dosage: 10 MILLIGRAM
     Route: 048
  2. SEGLOR [Suspect]
     Active Substance: DIHYDROERGOTAMINE MESYLATE
     Indication: MIGRAINE
     Dosage: UNK
     Route: 048
     Dates: start: 1993, end: 201212
  3. MEDIATOR [Suspect]
     Active Substance: BENFLUOREX
     Indication: OVERWEIGHT
     Dosage: UNK
     Route: 048
     Dates: start: 2007, end: 200911

REACTIONS (3)
  - Tricuspid valve incompetence [Recovered/Resolved with Sequelae]
  - Mitral valve incompetence [Recovered/Resolved with Sequelae]
  - Aortic valve incompetence [Recovered/Resolved with Sequelae]

NARRATIVE: CASE EVENT DATE: 20110530
